FAERS Safety Report 8028635-8 (Version None)
Quarter: 2012Q1

REPORT INFORMATION
  Report Type: 
  Country: None (occurrence: None)
  Receive Date: 20120106
  Receipt Date: 20111229
  Transmission Date: 20120608
  Serious: Yes (Hospitalization, Other)
  Sender: FDA-Public Use
  Company Number: US-SANOFI-AVENTIS-2012SA000259

PATIENT
  Age: 76 Year
  Sex: Female
  Weight: 61.23 kg

DRUGS (4)
  1. ANTIHYPERTENSIVES [Concomitant]
  2. ERBITUX [Suspect]
     Indication: COLORECTAL CANCER
     Dates: start: 20111001
  3. VITAMIN TAB [Concomitant]
  4. PLAVIX [Suspect]
     Route: 065

REACTIONS (16)
  - VOMITING [None]
  - SKIN ATROPHY [None]
  - PAIN OF SKIN [None]
  - WEIGHT DECREASED [None]
  - ERYTHEMA [None]
  - PRURITUS [None]
  - EXPRESSIVE LANGUAGE DISORDER [None]
  - APHAGIA [None]
  - ORAL PAIN [None]
  - SKIN REACTION [None]
  - INSOMNIA [None]
  - SKIN BURNING SENSATION [None]
  - ASTHENIA [None]
  - INCOHERENT [None]
  - SKIN HAEMORRHAGE [None]
  - RASH [None]
